FAERS Safety Report 6713484-0 (Version None)
Quarter: 2010Q2

REPORT INFORMATION
  Report Type: 
  Country: None (occurrence: None)
  Receive Date: 20100503
  Receipt Date: 20100422
  Transmission Date: 20101027
  Serious: Yes (Hospitalization)
  Sender: FDA-Public Use
  Company Number: 1000013469

PATIENT
  Age: 38 Year
  Sex: Male
  Weight: 80 kg

DRUGS (2)
  1. CELEXA [Suspect]
     Dosage: 20 MG (20 MG, 1 IN 1 D),ORAL
     Route: 048
  2. LITHIUM CARBONATE [Concomitant]

REACTIONS (4)
  - HEADACHE [None]
  - PYREXIA [None]
  - RASH MACULO-PAPULAR [None]
  - SKIN EXFOLIATION [None]
